FAERS Safety Report 8596343-0 (Version None)
Quarter: 2012Q3

REPORT INFORMATION
  Report Type: 
  Country: None (occurrence: None)
  Receive Date: 20120815
  Receipt Date: 20120806
  Transmission Date: 20120928
  Serious: Yes (Other)
  Sender: FDA-Public Use
  Company Number: US-ROCHE-772707

PATIENT
  Sex: Female
  Weight: 56.7 kg

DRUGS (5)
  1. ALEVE [Concomitant]
  2. ORTHO TRI-CYCLEN [Concomitant]
  3. ACCUTANE [Suspect]
     Route: 048
  4. IBUPROFEN [Concomitant]
     Dosage: DOSE: AS NEEDED
  5. ACCUTANE [Suspect]
     Indication: ACNE
     Route: 048
     Dates: start: 20001016, end: 20010401

REACTIONS (11)
  - INFLAMMATORY BOWEL DISEASE [None]
  - COLITIS ULCERATIVE [None]
  - EMOTIONAL DISTRESS [None]
  - THYROID DISORDER [None]
  - LIP DRY [None]
  - PROCTITIS ULCERATIVE [None]
  - UTERINE LEIOMYOMA [None]
  - CHAPPED LIPS [None]
  - DRY SKIN [None]
  - DEPRESSED MOOD [None]
  - NASAL DRYNESS [None]
